FAERS Safety Report 20140841 (Version 1)
Quarter: 2021Q4

REPORT INFORMATION
  Report Type: Spontaneous
  Country: DE (occurrence: DE)
  Receive Date: 20211202
  Receipt Date: 20211202
  Transmission Date: 20220303
  Serious: Yes (Other)
  Sender: FDA-Public Use
  Company Number: DE-NOVARTISPH-NVSC2021DE197927

PATIENT
  Sex: Male

DRUGS (1)
  1. TIMOLOL MALEATE\TRAVOPROST [Suspect]
     Active Substance: TIMOLOL MALEATE\TRAVOPROST
     Indication: Product used for unknown indication
     Dosage: UNK UNK, QD (IN RIGHT EYE)
     Route: 047

REACTIONS (2)
  - Diabetes mellitus [Not Recovered/Not Resolved]
  - Eye inflammation [Unknown]
